FAERS Safety Report 5347641-5 (Version None)
Quarter: 2007Q2

REPORT INFORMATION
  Report Type: 
  Country: None (occurrence: None)
  Receive Date: 20070606
  Receipt Date: 20070604
  Transmission Date: 20071010
  Serious: Yes (Hospitalization)
  Sender: FDA-Public Use
  Company Number: DE-BRISTOL-MYERS SQUIBB COMPANY-12714341

PATIENT
  Age: 68 Year
  Sex: Female
  Weight: 58 kg

DRUGS (14)
  1. CETUXIMAB [Suspect]
     Indication: COLORECTAL CANCER
     Dosage: DOSE DELAYED/REDUCED
     Route: 041
     Dates: start: 20040810, end: 20040810
  2. IRINOTECAN HCL [Suspect]
     Indication: COLORECTAL CANCER
     Route: 042
     Dates: start: 20040810, end: 20040810
  3. METHIONINE [Concomitant]
  4. GRANISETRON [Concomitant]
  5. PANCREATIN TRIPLE STRENGTH CAP [Concomitant]
  6. LOPERAMIDE HCL [Concomitant]
  7. GABAPENTIN [Concomitant]
  8. SACCHAROMYCES BOULARDII [Concomitant]
  9. PANTOPRAZOLE SODIUM [Concomitant]
  10. METAMIZOLE [Concomitant]
  11. FENTANYL [Concomitant]
  12. TPN ELECTROLYTES IN PLASTIC CONTAINER [Concomitant]
  13. INSULIN [Concomitant]
  14. INTRALIPID 10% [Concomitant]

REACTIONS (8)
  - DIARRHOEA [None]
  - DYSPNOEA [None]
  - FATIGUE [None]
  - HEADACHE [None]
  - HERPES ZOSTER [None]
  - HYPOTENSION [None]
  - NAUSEA [None]
  - NEUTROPENIA [None]
